FAERS Safety Report 17975465 (Version 1)
Quarter: 2020Q3

REPORT INFORMATION
  Report Type: Report from Study
  Country: CA (occurrence: CA)
  Receive Date: 20200702
  Receipt Date: 20200702
  Transmission Date: 20201103
  Serious: Yes (Other)
  Sender: FDA-Public Use
  Company Number: CA-JNJFOC-20200503099

PATIENT
  Age: 17 Year
  Sex: Female
  Weight: 62 kg

DRUGS (2)
  1. REMICADE [Suspect]
     Active Substance: INFLIXIMAB
     Indication: COLITIS ULCERATIVE
     Dosage: 600 MG 1 EVERY 5 WEEKS RECEIVED, SIGNED APRIL 30, 2020. ON 22/MAY/2020, THE PATIENT RECEIVED 7TH IN
     Route: 042
     Dates: start: 20191008
  2. REMICADE [Suspect]
     Active Substance: INFLIXIMAB
     Dosage: ON 22/JUN/2020, THE PATIENT RECEIVED 8TH 700 INFLIXIMAB INFUSION.
     Route: 042

REACTIONS (5)
  - Abdominal pain [Unknown]
  - General physical health deterioration [Unknown]
  - Haematochezia [Not Recovered/Not Resolved]
  - Off label use [Unknown]
  - Product use issue [Unknown]

NARRATIVE: CASE EVENT DATE: 20191008
